FAERS Safety Report 18456145 (Version 1)
Quarter: 2020Q4

REPORT INFORMATION
  Report Type: Spontaneous
  Country: LT (occurrence: LT)
  Receive Date: 20201103
  Receipt Date: 20201103
  Transmission Date: 20210114
  Serious: Yes (Hospitalization)
  Sender: FDA-Public Use
  Company Number: LT-ACCORD-207074

PATIENT
  Age: 55 Year
  Sex: Female

DRUGS (7)
  1. INFLIXIMAB [Concomitant]
     Active Substance: INFLIXIMAB
     Indication: RHEUMATOID ARTHRITIS
     Dosage: 3 MG / KG
     Dates: start: 20190611, end: 20190724
  2. LORNOXICAM [Concomitant]
     Active Substance: LORNOXICAM
     Indication: RHEUMATOID ARTHRITIS
     Dosage: 8 MG 2 TIMES / DAY
  3. PLAQUENIL [Concomitant]
     Active Substance: HYDROXYCHLOROQUINE SULFATE
     Indication: RHEUMATOID ARTHRITIS
     Dosage: 200 MG 2 TIMES / DAY
  4. FOLIC ACID. [Concomitant]
     Active Substance: FOLIC ACID
     Indication: RHEUMATOID ARTHRITIS
  5. TRANDOLAPRIL AND VERAPAMIL HYDROCHLORIDE [Concomitant]
     Active Substance: TRANDOLAPRIL\VERAPAMIL HYDROCHLORIDE
     Indication: HYPERTENSION
     Dosage: 240 MG / 4 MG 1 TIME /DAY
  6. METHOTREXATE. [Suspect]
     Active Substance: METHOTREXATE
     Indication: RHEUMATOID ARTHRITIS
     Dosage: DOSE INCREASED TO 15 MG / WEEK
  7. METHYLPREDNISOLONE. [Concomitant]
     Active Substance: METHYLPREDNISOLONE
     Indication: RHEUMATOID ARTHRITIS

REACTIONS (1)
  - Tick-borne viral encephalitis [Recovered/Resolved]
